FAERS Safety Report 18471236 (Version 1)
Quarter: 2020Q4

REPORT INFORMATION
  Report Type: Spontaneous
  Country: US (occurrence: US)
  Receive Date: 20201105
  Receipt Date: 20201105
  Transmission Date: 20210114
  Serious: Yes (Death, Other)
  Sender: FDA-Public Use
  Company Number: US-PURDUE-USA-2020-0166773

PATIENT
  Age: 48 Year
  Sex: Male

DRUGS (2)
  1. PALLADONE [Suspect]
     Active Substance: HYDROMORPHONE HYDROCHLORIDE
     Indication: PAIN
     Route: 065
  2. OXYCONTIN [Suspect]
     Active Substance: OXYCODONE HYDROCHLORIDE
     Indication: PAIN
     Route: 048

REACTIONS (5)
  - Overdose [Unknown]
  - Pain [Unknown]
  - Dependence [Unknown]
  - Stress [Unknown]
  - Completed suicide [Fatal]

NARRATIVE: CASE EVENT DATE: 20150223
